FAERS Safety Report 5228893-9 (Version None)
Quarter: 2007Q1

REPORT INFORMATION
  Report Type: 
  Country: None (occurrence: None)
  Receive Date: 20070205
  Receipt Date: 20070129
  Transmission Date: 20070707
  Serious: Yes (Hospitalization)
  Sender: FDA-Public Use
  Company Number: FR-SHR-FR-2006-036535

PATIENT
  Age: 50 Year
  Sex: Female
  Weight: 49 kg

DRUGS (3)
  1. MIRENA [Suspect]
     Indication: CONTRACEPTION
     Dosage: 20 A?G/DAY, CONT
     Route: 015
     Dates: start: 19980804, end: 20040907
  2. NORPROLAC [Concomitant]
  3. PARLODEL [Concomitant]
     Dosage: .5 DF, UNK
     Route: 048

REACTIONS (2)
  - BREAST CANCER [None]
  - BREAST MASS [None]
